FAERS Safety Report 5902705-X (Version None)
Quarter: 2008Q3

REPORT INFORMATION
  Report Type: 
  Country: None (occurrence: None)
  Receive Date: 20080929
  Receipt Date: 20080929
  Transmission Date: 20090109
  Serious: Yes (Hospitalization)
  Sender: FDA-Public Use
  Company Number: None

PATIENT
  Sex: Male
  Weight: 107 kg

DRUGS (1)
  1. BACTRIM DS [Suspect]
     Indication: STAPHYLOCOCCAL INFECTION
     Dosage: 800/160 BID PO
     Route: 048
     Dates: start: 20080721, end: 20080724

REACTIONS (11)
  - ACUTE HEPATIC FAILURE [None]
  - BLOOD ALBUMIN DECREASED [None]
  - CHILLS [None]
  - DRUG RASH WITH EOSINOPHILIA AND SYSTEMIC SYMPTOMS [None]
  - HEADACHE [None]
  - HYPOPHAGIA [None]
  - HYPOXIA [None]
  - INTERNATIONAL NORMALISED RATIO INCREASED [None]
  - NASAL CONGESTION [None]
  - PYREXIA [None]
  - WRONG DRUG ADMINISTERED [None]
